FAERS Safety Report 4322084-1 (Version None)
Quarter: 2004Q1

REPORT INFORMATION
  Report Type: 
  Country: None (occurrence: None)
  Receive Date: 20040323
  Receipt Date: 20040309
  Transmission Date: 20041129
  Serious: Yes (Other)
  Sender: FDA-Public Use
  Company Number: US-GLAXOSMITHKLINE-A0503506A

PATIENT
  Age: 20 Year

DRUGS (5)
  1. LAMOTRIGINE [Suspect]
     Indication: BIPOLAR DISORDER
  2. ZOLOFT [Concomitant]
     Dosage: 100MG PER DAY
  3. XANAX [Concomitant]
     Dosage: 1MG PER DAY
  4. SINGULAIR [Concomitant]
  5. NEXIUM [Concomitant]

REACTIONS (2)
  - DRUG EXPOSURE DURING PREGNANCY [None]
  - INTRA-UTERINE DEATH [None]
